FAERS Safety Report 11026321 (Version 2)
Quarter: 2015Q2

REPORT INFORMATION
  Report Type: Report from Study
  Country: DE (occurrence: DE)
  Receive Date: 20150414
  Receipt Date: 20150612
  Transmission Date: 20150821
  Serious: Yes (Hospitalization, Other)
  Sender: FDA-Public Use
  Company Number: DE-ABBVIE-15K-062-1373617-00

PATIENT
  Age: 60 Year
  Sex: Male
  Weight: 95 kg

DRUGS (2)
  1. DERMATOP [Concomitant]
     Active Substance: PREDNICARBATE
     Indication: PRODUCT USED FOR UNKNOWN INDICATION
  2. HUMIRA [Suspect]
     Active Substance: ADALIMUMAB
     Indication: PSORIASIS
     Dosage: CURRENTLY PAUSED
     Route: 058
     Dates: start: 201305, end: 20150127

REACTIONS (8)
  - Dysaesthesia [Unknown]
  - Carotid artery occlusion [Recovered/Resolved with Sequelae]
  - Syncope [Unknown]
  - Intervertebral disc degeneration [Unknown]
  - Cervical spinal stenosis [Unknown]
  - Spinal osteoarthritis [Recovered/Resolved with Sequelae]
  - Cervicogenic headache [Unknown]
  - Osteochondrosis [Unknown]

NARRATIVE: CASE EVENT DATE: 201501
